FAERS Safety Report 4458064-5 (Version None)
Quarter: 2004Q3

REPORT INFORMATION
  Report Type: 
  Country: None (occurrence: None)
  Receive Date: 20040922
  Receipt Date: 20040903
  Transmission Date: 20050211
  Serious: No
  Sender: FDA-Public Use
  Company Number: A04200400256

PATIENT
  Age: 71 Year
  Sex: Male

DRUGS (4)
  1. ELOXATIN [Suspect]
     Indication: COLON CANCER
     Dosage: 49.02 MG/M2 OTHER; FEW HOURS
     Route: 041
     Dates: start: 20040217, end: 20040217
  2. ELOXATIN [Suspect]
     Indication: METASTASES TO LIVER
     Dosage: 49.02 MG/M2 OTHER; FEW HOURS
     Route: 041
     Dates: start: 20040217, end: 20040217
  3. FLUOROURACIL [Concomitant]
  4. LEUCOVORIN CALCIUM [Concomitant]

REACTIONS (1)
  - DIABETIC KETOACIDOTIC HYPERGLYCAEMIC COMA [None]
